FAERS Safety Report 23913190 (Version 2)
Quarter: 2024Q3

REPORT INFORMATION
  Report Type: Report from Study
  Country: US (occurrence: US)
  Receive Date: 20240529
  Receipt Date: 20240709
  Transmission Date: 20241016
  Serious: No
  Sender: BRISTOL MYERS SQUIBB
  Company Number: US-BRISTOL-MYERS SQUIBB COMPANY-2024-085141

PATIENT
  Age: 69 Year
  Sex: Female
  Weight: 57.61 kg

DRUGS (2)
  1. POMALYST [Suspect]
     Active Substance: POMALIDOMIDE
     Indication: Plasma cell myeloma
     Dosage: FREQUENCY: 21
     Dates: start: 20240430
  2. POMALYST [Suspect]
     Active Substance: POMALIDOMIDE
     Route: 048
     Dates: start: 20240430

REACTIONS (4)
  - Neutrophil count abnormal [Unknown]
  - Fatigue [Unknown]
  - Product distribution issue [Unknown]
  - Therapy interrupted [Unknown]
